APPROVED DRUG PRODUCT: METHYLPHENIDATE HYDROCHLORIDE
Active Ingredient: METHYLPHENIDATE HYDROCHLORIDE
Strength: 5MG
Dosage Form/Route: TABLET;ORAL
Application: A091159 | Product #001
Applicant: MOUNTAIN LLC
Approved: Mar 12, 2014 | RLD: No | RS: No | Type: DISCN